FAERS Safety Report 12623149 (Version 1)
Quarter: 2016Q3

REPORT INFORMATION
  Report Type: Spontaneous
  Country: BR (occurrence: BR)
  Receive Date: 20160804
  Receipt Date: 20160804
  Transmission Date: 20161109
  Serious: Yes (Hospitalization)
  Sender: FDA-Public Use
  Company Number: BR-PFIZER INC-2016364601

PATIENT
  Age: 74 Year
  Sex: Male

DRUGS (1)
  1. LORAX [Suspect]
     Active Substance: LORAZEPAM
     Dosage: 2 MG, UNK

REACTIONS (2)
  - Road traffic accident [Unknown]
  - Joint dislocation [Unknown]
